FAERS Safety Report 9851305 (Version 1)
Quarter: 2014Q1

REPORT INFORMATION
  Report Type: Spontaneous
  Country: RU (occurrence: RU)
  Receive Date: 20140129
  Receipt Date: 20140129
  Transmission Date: 20141002
  Serious: Yes (Hospitalization, Other)
  Sender: FDA-Public Use
  Company Number: RU-PFIZER INC-2014023304

PATIENT
  Age: 18 Year
  Sex: Female
  Weight: 47 kg

DRUGS (3)
  1. DOSTINEX [Suspect]
     Indication: HYPERPROLACTINAEMIA
     Dosage: 0.25 MG, 2X/WEEK
     Route: 048
     Dates: start: 2012, end: 2012
  2. DOSTINEX [Suspect]
     Dosage: 0.25 MG, 2X/WEEK
     Route: 048
     Dates: start: 2012
  3. DOSTINEX [Suspect]
     Dosage: 0.125 MG, WEEKLY
     Route: 048
     Dates: start: 201308

REACTIONS (3)
  - Abdominal pain [Recovered/Resolved]
  - Appendicitis [Recovered/Resolved]
  - Weight increased [Unknown]
